FAERS Safety Report 8045784-9 (Version None)
Quarter: 2012Q1

REPORT INFORMATION
  Report Type: 
  Country: None (occurrence: None)
  Receive Date: 20120113
  Receipt Date: 20120111
  Transmission Date: 20120608
  Serious: Yes (Other)
  Sender: FDA-Public Use
  Company Number: US-CELGENEUS-163-21880-11122329

PATIENT
  Sex: Male

DRUGS (12)
  1. LEVITRA [Concomitant]
     Route: 065
  2. XANAX [Concomitant]
     Route: 065
  3. OMEPRAZOLE [Concomitant]
     Route: 065
  4. FIORICET [Concomitant]
     Route: 065
  5. REVLIMID [Suspect]
     Indication: MULTIPLE MYELOMA
     Dosage: 10 MILLIGRAM
     Route: 048
     Dates: start: 20111108, end: 20111130
  6. ASPIRIN [Concomitant]
     Dosage: LOW DOSE
     Route: 065
  7. ZOMETA [Concomitant]
     Route: 065
  8. LISINOPRIL [Concomitant]
     Route: 065
  9. PHENERGAN [Concomitant]
     Route: 065
  10. REVLIMID [Suspect]
     Dosage: 10 MILLIGRAM
     Route: 048
     Dates: start: 20111201
  11. AMBIEN [Concomitant]
     Route: 065
  12. LORTAB [Concomitant]
     Route: 065

REACTIONS (2)
  - PATHOLOGICAL FRACTURE [None]
  - HYPOAESTHESIA [None]
